FAERS Safety Report 22644021 (Version 1)
Quarter: 2023Q2

REPORT INFORMATION
  Report Type: Spontaneous
  Country: AM (occurrence: None)
  Receive Date: 20230627
  Receipt Date: 20230627
  Transmission Date: 20230721
  Serious: Yes (Other)
  Sender: FDA-Public Use
  Company Number: AM-ROCHE-3374053

PATIENT
  Age: 62 Year
  Sex: Male

DRUGS (4)
  1. TECENTRIQ [Suspect]
     Active Substance: ATEZOLIZUMAB
     Indication: Small cell lung cancer metastatic
     Dosage: ON 30/MAY/2023, LAST INFUSION WAS DONE.
     Route: 041
     Dates: start: 20221122
  2. ETOPOSIDE [Concomitant]
     Active Substance: ETOPOSIDE
     Dates: start: 20221122
  3. CARBOPLATIN [Concomitant]
     Active Substance: CARBOPLATIN
  4. XARELTO [Concomitant]
     Active Substance: RIVAROXABAN

REACTIONS (3)
  - Pulmonary artery thrombosis [Not Recovered/Not Resolved]
  - Neoplasm progression [Not Recovered/Not Resolved]
  - Dyspnoea [Not Recovered/Not Resolved]
